FAERS Safety Report 9591871 (Version 2)
Quarter: 2013Q4

REPORT INFORMATION
  Report Type: Spontaneous
  Country: US (occurrence: US)
  Receive Date: 20131004
  Receipt Date: 20131004
  Transmission Date: 20140711
  Serious: No
  Sender: FDA-Public Use
  Company Number: US-AMGEN-USASP2012081070

PATIENT
  Age: 53 Year
  Sex: Female

DRUGS (20)
  1. ENBREL [Suspect]
     Indication: PRODUCT USED FOR UNKNOWN INDICATION
     Dosage: 50 MG, QWK
     Route: 058
  2. ENBREL [Suspect]
  3. NEURONTIN [Concomitant]
     Dosage: 100 MG, UNK
  4. VESICARE [Concomitant]
     Dosage: 5 MG, UNK
  5. INDOCIN                            /00003801/ [Concomitant]
     Dosage: 50 MG, UNK
  6. SAVELLA [Concomitant]
     Dosage: 12.5 MG, UNK
  7. COZAAR [Concomitant]
     Dosage: 25 MG, UNK
  8. TOPAMAX [Concomitant]
     Dosage: 25 MG, UNK
  9. DURAGESIC                          /00070401/ [Concomitant]
     Dosage: 25 MCG/HR
  10. ELMIRON [Concomitant]
     Dosage: 100 MG, UNK
  11. METHOTREXATE [Concomitant]
     Dosage: 2.5 MG, UNK
  12. FOLIC ACID [Concomitant]
     Dosage: 1 MG, UNK
  13. VITAMIN D2 [Concomitant]
     Dosage: 400 UNIT, UNK
  14. VITAMIN C                          /00008001/ [Concomitant]
     Dosage: 100 MG, UNK
  15. CALCIUM + VITAMIN D [Concomitant]
     Dosage: 600 UNK, UNK
  16. FISH OIL [Concomitant]
     Dosage: UNK
  17. BIOTIN [Concomitant]
     Dosage: 5 MG, UNK
  18. FENTANYL [Concomitant]
     Dosage: 25 MCG/HR
  19. ALIGN [Concomitant]
     Dosage: 4 MG, UNK
  20. DILAUDID [Concomitant]
     Dosage: 2 MG, UNK

REACTIONS (1)
  - Upper respiratory tract infection [Unknown]
